FAERS Safety Report 8742030 (Version 2)
Quarter: 2013Q4

REPORT INFORMATION
  Report Type: Spontaneous
  Country: US (occurrence: US)
  Receive Date: 20120824
  Receipt Date: 20131101
  Transmission Date: 20140711
  Serious: No
  Sender: FDA-Public Use
  Company Number: US-009507513-1208USA008490

PATIENT
  Sex: Female

DRUGS (4)
  1. SAPHRIS [Suspect]
     Indication: BIPOLAR I DISORDER
     Dosage: 5 MG, QD, AT BEDTIME
     Route: 060
     Dates: start: 20120216
  2. DEPAKOTE [Concomitant]
  3. CELEXA [Concomitant]
  4. AMBIEN [Concomitant]

REACTIONS (3)
  - Akathisia [Recovered/Resolved]
  - Increased appetite [Recovered/Resolved]
  - Underdose [Recovered/Resolved]
